FAERS Safety Report 8547642-X (Version None)
Quarter: 2012Q3

REPORT INFORMATION
  Report Type: 
  Country: None (occurrence: None)
  Receive Date: 20120727
  Receipt Date: 20120503
  Transmission Date: 20120928
  Serious: Yes (Other)
  Sender: FDA-Public Use
  Company Number: US-ASTRAZENECA-2012SE28899

PATIENT
  Age: 58 Year
  Sex: Male
  Weight: 81.6 kg

DRUGS (3)
  1. SEROQUEL [Suspect]
     Route: 048
  2. SEROQUEL [Suspect]
     Indication: ABNORMAL BEHAVIOUR
     Route: 048
  3. SEROQUEL [Suspect]
     Route: 048

REACTIONS (3)
  - WEIGHT DECREASED [None]
  - TARDIVE DYSKINESIA [None]
  - OFF LABEL USE [None]
